FAERS Safety Report 24839066 (Version 2)
Quarter: 2025Q1

REPORT INFORMATION
  Report Type: Spontaneous
  Country: US (occurrence: US)
  Receive Date: 20250114
  Receipt Date: 20250308
  Transmission Date: 20250409
  Serious: No
  Sender: ABBVIE
  Company Number: US-ABBVIE-6076178

PATIENT
  Sex: Female

DRUGS (1)
  1. VYALEV [Suspect]
     Active Substance: FOSCARBIDOPA\FOSLEVODOPA
     Indication: Parkinson^s disease
     Route: 058
     Dates: start: 20250103

REACTIONS (3)
  - Infusion site papule [Recovered/Resolved]
  - Infusion site reaction [Recovered/Resolved]
  - Infusion site discolouration [Recovered/Resolved]

NARRATIVE: CASE EVENT DATE: 20250103
